FAERS Safety Report 13323336 (Version 1)
Quarter: 2017Q1

REPORT INFORMATION
  Report Type: Spontaneous
  Country: JP (occurrence: JP)
  Receive Date: 20170310
  Receipt Date: 20170310
  Transmission Date: 20170428
  Serious: Yes (Other)
  Sender: FDA-Public Use
  Company Number: JP-PFIZER INC-2017102372

PATIENT
  Age: 7 Decade
  Sex: Male

DRUGS (3)
  1. METHOTREXATE SODIUM. [Suspect]
     Active Substance: METHOTREXATE SODIUM
     Dosage: 16 MG, WEEKLY
  2. PREDNISOLONE. [Suspect]
     Active Substance: PREDNISOLONE
     Dosage: 5 MG, UNK
     Route: 048
  3. ISONIAZID. [Suspect]
     Active Substance: ISONIAZID
     Dosage: UNK

REACTIONS (1)
  - Tuberculous pleurisy [Unknown]
